FAERS Safety Report 19190357 (Version 2)
Quarter: 2021Q2

REPORT INFORMATION
  Report Type: Spontaneous
  Country: CN (occurrence: CN)
  Receive Date: 20210428
  Receipt Date: 20210428
  Transmission Date: 20210717
  Serious: Yes (Hospitalization)
  Sender: FDA-Public Use
  Company Number: NVSC2021CN090370

PATIENT
  Age: 35 Year
  Sex: Female
  Weight: 54 kg

DRUGS (6)
  1. SANDIMMUN [Suspect]
     Active Substance: CYCLOSPORINE
     Indication: SYMPTOMATIC TREATMENT
     Dosage: 90 MG, QD
     Route: 041
     Dates: start: 20210307, end: 20210311
  2. SANDIMMUN [Suspect]
     Active Substance: CYCLOSPORINE
     Dosage: 70 MG, QD
     Route: 041
     Dates: start: 20210325, end: 20210402
  3. SANDIMMUN [Suspect]
     Active Substance: CYCLOSPORINE
     Dosage: 80 MG, QD
     Route: 041
     Dates: start: 20210319, end: 20210324
  4. METHYLPREDNISOLONE SODIUM SUCCINATE. [Concomitant]
     Active Substance: METHYLPREDNISOLONE SODIUM SUCCINATE
     Dosage: 10 MG, QD
     Route: 041
     Dates: start: 20210312, end: 20210319
  5. SANDIMMUN [Suspect]
     Active Substance: CYCLOSPORINE
     Dosage: 85 MG, QD
     Route: 041
     Dates: start: 20210312, end: 20210319
  6. METHYLPREDNISOLONE SODIUM SUCCINATE. [Concomitant]
     Active Substance: METHYLPREDNISOLONE SODIUM SUCCINATE
     Indication: SYMPTOMATIC TREATMENT
     Dosage: 30 MG, QD
     Route: 041
     Dates: start: 20210307, end: 20210312

REACTIONS (2)
  - Condition aggravated [Recovering/Resolving]
  - Liver function test abnormal [Recovering/Resolving]

NARRATIVE: CASE EVENT DATE: 202103
